FAERS Safety Report 20597190 (Version 2)
Quarter: 2022Q1

REPORT INFORMATION
  Report Type: Spontaneous
  Country: CN (occurrence: CN)
  Receive Date: 20220315
  Receipt Date: 20220318
  Transmission Date: 20220423
  Serious: Yes (Hospitalization, Disabling)
  Sender: FDA-Public Use
  Company Number: CN-PFIZER INC-202200364915

PATIENT
  Age: 55 Year
  Sex: Male
  Weight: 88.1 kg

DRUGS (6)
  1. MEDROL [Suspect]
     Active Substance: METHYLPREDNISOLONE
     Indication: Immunosuppression
     Dosage: 24 MG, 1X/DAY
     Route: 048
     Dates: start: 20220107, end: 20220204
  2. MEDROL [Suspect]
     Active Substance: METHYLPREDNISOLONE
     Dosage: 16 MG, 1X/DAY
     Route: 048
     Dates: start: 20220205, end: 20220219
  3. MEDROL [Suspect]
     Active Substance: METHYLPREDNISOLONE
     Dosage: 12 MG, 1X/DAY
     Route: 048
     Dates: start: 20220220, end: 20220220
  4. PANTOPRAZOLE SODIUM [Suspect]
     Active Substance: PANTOPRAZOLE SODIUM
     Indication: Acid base balance
     Dosage: TRADE NAME: XI LUO SHI
     Route: 048
     Dates: start: 20220107, end: 20220220
  5. PANTOPRAZOLE SODIUM [Suspect]
     Active Substance: PANTOPRAZOLE SODIUM
     Indication: Gastric disorder
  6. ALLISARTAN ISOPROXIL [Suspect]
     Active Substance: ALLISARTAN ISOPROXIL
     Indication: Blood pressure decreased
     Dosage: 0.24 G, 1X/DAY
     Route: 048
     Dates: start: 20220107, end: 20220220

REACTIONS (1)
  - Drug-induced liver injury [Recovering/Resolving]

NARRATIVE: CASE EVENT DATE: 20220212
